FAERS Safety Report 9097646 (Version 1)
Quarter: 2013Q1

REPORT INFORMATION
  Report Type: Spontaneous
  Country: FR (occurrence: FR)
  Receive Date: 20130212
  Receipt Date: 20130212
  Transmission Date: 20140127
  Serious: Yes (Other)
  Sender: FDA-Public Use
  Company Number: FR-JNJFOC-20130201893

PATIENT
  Age: 84 Year
  Sex: Female

DRUGS (4)
  1. XARELTO [Suspect]
     Indication: EMBOLISM VENOUS
     Route: 065
     Dates: start: 2013
  2. XARELTO [Suspect]
     Indication: EMBOLISM VENOUS
     Route: 065
     Dates: start: 20130108
  3. XARELTO [Suspect]
     Indication: DEEP VEIN THROMBOSIS
     Route: 065
     Dates: start: 20130108
  4. XARELTO [Suspect]
     Indication: DEEP VEIN THROMBOSIS
     Route: 065
     Dates: start: 2013

REACTIONS (2)
  - Gingival bleeding [Recovering/Resolving]
  - Chromaturia [Recovering/Resolving]
